FAERS Safety Report 5026890-X (Version None)
Quarter: 2006Q2

REPORT INFORMATION
  Report Type: 
  Country: None (occurrence: None)
  Receive Date: 20060609
  Receipt Date: 20060531
  Transmission Date: 20061013
  Serious: Yes (Life-Threatening, Other)
  Sender: FDA-Public Use
  Company Number: 2006RL000186

PATIENT
  Sex: Male

DRUGS (7)
  1. PROPAFENONE HCL [Suspect]
     Dates: start: 20060101, end: 20060501
  2. TAMSULOSIN HCL [Concomitant]
  3. MONADUR [Concomitant]
  4. ATORVASTATIN CALCIUM [Concomitant]
  5. ACETYLSALICYLIC ACID SRT [Concomitant]
  6. GINKGO BILOBA LEAF EXTRACT [Concomitant]
  7. DIGOXIN [Concomitant]

REACTIONS (3)
  - BRADYCARDIA [None]
  - CARDIAC ARREST [None]
  - LOSS OF CONSCIOUSNESS [None]
